FAERS Safety Report 5606225-1 (Version None)
Quarter: 2008Q1

REPORT INFORMATION
  Report Type: 
  Country: None (occurrence: None)
  Receive Date: 20080129
  Receipt Date: 20070227
  Transmission Date: 20080703
  Serious: No
  Sender: FDA-Public Use
  Company Number: A0641174A

PATIENT
  Age: 51 Year
  Sex: Male

DRUGS (5)
  1. WELLBUTRIN [Suspect]
     Indication: DEPRESSION
     Route: 048
  2. FLOMAX [Concomitant]
  3. LIPITOR [Concomitant]
  4. ASPIRIN [Concomitant]
  5. MSM + GLUCOSAMINE [Concomitant]

REACTIONS (1)
  - TINNITUS [None]
